FAERS Safety Report 16716031 (Version 1)
Quarter: 2019Q3

REPORT INFORMATION
  Report Type: Report from Study
  Country: FR (occurrence: FR)
  Receive Date: 20190819
  Receipt Date: 20190819
  Transmission Date: 20191005
  Serious: Yes (Hospitalization)
  Sender: FDA-Public Use
  Company Number: FR-MYLANLABS-2019M1076505

PATIENT
  Age: 39 Year
  Sex: Male
  Weight: 57 kg

DRUGS (15)
  1. URSOLVAN [Concomitant]
     Active Substance: URSODIOL
     Indication: CHOLESTASIS
     Dosage: 6 DOSAGE FORM, QD (3 TABLETS, BID)
     Route: 048
  2. COLISTIN [Concomitant]
     Active Substance: COLISTIN
     Indication: RESPIRATORY TRACT INFECTION
     Dosage: 2 MUI X 2/DAY
  3. AZITHROMYCIN ANHYDROUS. [Concomitant]
     Active Substance: AZITHROMYCIN ANHYDROUS
     Indication: RESPIRATORY TRACT INFECTION
     Dosage: 250 MILLIGRAM, QD
     Route: 048
  4. NOVORAPID [Concomitant]
     Active Substance: INSULIN ASPART
     Indication: DIABETES MELLITUS
     Dosage: 1 UNK, QD (8 X 3/DAY)
     Route: 058
  5. CEFTOLOZANE SULFATE W/TAZOBACTAM SODIUM [Suspect]
     Active Substance: CEFTOLOZANE SULFATE\TAZOBACTAM SODIUM
     Indication: PNEUMONIA
     Dosage: 3 UNK, QD
     Route: 042
     Dates: start: 20190131, end: 20190203
  6. SPIRIVA [Concomitant]
     Active Substance: TIOTROPIUM BROMIDE MONOHYDRATE
     Indication: LOWER RESPIRATORY TRACT CONGESTION
     Dosage: 1 DOSAGE FORM, QD
  7. VFEND [Concomitant]
     Active Substance: VORICONAZOLE
     Indication: RESPIRATORY TRACT INFECTION
     Dosage: 20 MILLIGRAM, QD (10 MILLIGRAM, BID)
     Route: 048
  8. EUROBIOL                           /00014701/ [Concomitant]
     Indication: PANCREATIC FAILURE
     Dosage: 10 GRAM, QD
     Route: 048
  9. LINEZOLID. [Suspect]
     Active Substance: LINEZOLID
     Indication: PNEUMONIA
     Dosage: 1200 MILLIGRAM, QD
     Route: 065
     Dates: start: 20190130, end: 20190213
  10. LEVEMIR [Concomitant]
     Active Substance: INSULIN DETEMIR
     Indication: DIABETES MELLITUS
     Dosage: 5 INTERNATIONAL UNIT, QD
     Route: 058
  11. FUMAFER [Concomitant]
     Active Substance: FERROUS FUMARATE
     Indication: ROUTINE HEALTH MAINTENANCE
     Dosage: 1 DOSAGE FORM, QD
     Route: 048
  12. PULMOZYME [Concomitant]
     Active Substance: DORNASE ALFA
     Indication: LOWER RESPIRATORY TRACT CONGESTION
     Dosage: 1 INTERNATIONAL UNIT, QD (2500 IU, QD)
  13. ORKAMBI [Concomitant]
     Active Substance: IVACAFTOR\LUMACAFTOR
     Indication: CYSTIC FIBROSIS
     Dosage: 800 MILLIGRAM, QD (400 MILLIGRAM, BID)
     Route: 048
  14. SERETIDE [Concomitant]
     Active Substance: FLUTICASONE PROPIONATE\SALMETEROL XINAFOATE
     Indication: LOWER RESPIRATORY TRACT CONGESTION
     Dosage: 2 UNK, QD (2 PUFFS, BID)
  15. CORTANCYL [Concomitant]
     Active Substance: PREDNISONE
     Indication: INFLAMMATION
     Dosage: 5 MILLIGRAM, QD
     Route: 048

REACTIONS (4)
  - Off label use [Unknown]
  - Treatment failure [Recovering/Resolving]
  - Overdose [Unknown]
  - Pyrexia [Recovering/Resolving]

NARRATIVE: CASE EVENT DATE: 20190131
